FAERS Safety Report 8742568 (Version 2)
Quarter: 2019Q1

REPORT INFORMATION
  Report Type: Spontaneous
  Country: US (occurrence: US)
  Receive Date: 20120824
  Receipt Date: 20190111
  Transmission Date: 20190418
  Serious: No
  Sender: FDA-Public Use
  Company Number: US-ASTRAZENECA-2012SE23090

PATIENT
  Age: 82 Year
  Sex: Female
  Weight: 53.5 kg

DRUGS (2)
  1. SYMBICORT [Suspect]
     Active Substance: BUDESONIDE\FORMOTEROL FUMARATE DIHYDRATE
     Indication: CHRONIC OBSTRUCTIVE PULMONARY DISEASE
     Dosage: 160/4.5 MCG, 2 PUFFS BID
     Route: 055
  2. CLONIDINE. [Concomitant]
     Active Substance: CLONIDINE
     Indication: BLOOD PRESSURE ABNORMAL

REACTIONS (5)
  - Product dispensing error [Unknown]
  - Dyspnoea [Recovered/Resolved]
  - Musculoskeletal pain [Unknown]
  - Pain in extremity [Unknown]
  - Hypoaesthesia [Unknown]
